FAERS Safety Report 6186493-0 (Version None)
Quarter: 2009Q2

REPORT INFORMATION
  Report Type: 
  Country: None (occurrence: None)
  Receive Date: 20090512
  Receipt Date: 20090504
  Transmission Date: 20091009
  Serious: Yes (Other)
  Sender: FDA-Public Use
  Company Number: US-JNJFOC-20090501111

PATIENT
  Age: 61 Year
  Sex: Female

DRUGS (11)
  1. HALOPERIDOL [Suspect]
     Route: 042
  2. HALOPERIDOL [Suspect]
     Indication: AGITATION
     Route: 042
  3. TRIFLUOPERAZINE [Suspect]
     Dosage: 5 MG IN THE MORNING AND 25 MG IN THE EVENING
     Route: 065
  4. TRIFLUOPERAZINE [Suspect]
     Dosage: 5 MG IN THE MORNING AND 20 MG IN THE EVENING
     Route: 065
  5. TRIFLUOPERAZINE [Suspect]
     Indication: DRUG USE FOR UNKNOWN INDICATION
     Route: 065
  6. LITHIUM CARBONATE [Suspect]
     Dosage: EVENING
     Route: 065
  7. LITHIUM CARBONATE [Suspect]
     Indication: DRUG USE FOR UNKNOWN INDICATION
     Dosage: MORNING
     Route: 065
  8. OLANZAPINE [Suspect]
     Indication: DRUG USE FOR UNKNOWN INDICATION
     Route: 065
  9. ZIPRASIDONE HCL [Suspect]
     Indication: DRUG USE FOR UNKNOWN INDICATION
     Route: 065
  10. VANCOMYCIN HCL [Concomitant]
     Indication: STAPHYLOCOCCAL INFECTION
     Route: 065
  11. CEFTRIAXONE [Concomitant]
     Indication: URINARY TRACT INFECTION
     Route: 065

REACTIONS (2)
  - CATATONIA [None]
  - NEUROLEPTIC MALIGNANT SYNDROME [None]
